FAERS Safety Report 6543833-8 (Version None)
Quarter: 2010Q1

REPORT INFORMATION
  Report Type: 
  Country: None (occurrence: None)
  Receive Date: 20100119
  Receipt Date: 20100119
  Transmission Date: 20100710
  Serious: No
  Sender: FDA-Public Use
  Company Number: None

PATIENT
  Age: 45 Year
  Sex: Male
  Weight: 76.7 kg

DRUGS (2)
  1. AMOXICILLIN [Suspect]
     Indication: PROPHYLAXIS
     Dosage: 1000 MG ONCE PO
     Route: 048
     Dates: start: 20091201, end: 20091201
  2. AMOXICILLIN [Suspect]
     Indication: TOOTH DISORDER
     Dosage: 1000 MG ONCE PO
     Route: 048
     Dates: start: 20091201, end: 20091201

REACTIONS (4)
  - CONVULSION [None]
  - DIARRHOEA [None]
  - NAUSEA [None]
  - VOMITING [None]
